FAERS Safety Report 20504202 (Version 3)
Quarter: 2022Q2

REPORT INFORMATION
  Report Type: Report from Study
  Country: US (occurrence: US)
  Receive Date: 20220222
  Receipt Date: 20220603
  Transmission Date: 20220721
  Serious: Yes (Hospitalization, Other)
  Sender: FDA-Public Use
  Company Number: US-ABBVIE-22K-163-4286868-00

PATIENT
  Age: 50 Year
  Sex: Female
  Weight: 77.634 kg

DRUGS (3)
  1. SKYRIZI [Suspect]
     Active Substance: RISANKIZUMAB-RZAA
     Indication: Psoriasis
     Route: 058
     Dates: start: 202106
  2. ELIQUIS [Concomitant]
     Active Substance: APIXABAN
     Indication: Anticoagulant therapy
  3. TRISTAN [Concomitant]
     Indication: Hypersensitivity

REACTIONS (6)
  - Cardiac failure congestive [Recovered/Resolved]
  - Atrial fibrillation [Recovering/Resolving]
  - Heart rate irregular [Not Recovered/Not Resolved]
  - Joint swelling [Unknown]
  - Swelling [Unknown]
  - Psoriasis [Recovered/Resolved]

NARRATIVE: CASE EVENT DATE: 20210601
